APPROVED DRUG PRODUCT: PALIPERIDONE
Active Ingredient: PALIPERIDONE
Strength: 1.5MG
Dosage Form/Route: TABLET, EXTENDED RELEASE;ORAL
Application: A218514 | Product #001 | TE Code: AB
Applicant: AJANTA PHARMA LTD
Approved: Jun 26, 2024 | RLD: No | RS: No | Type: RX